FAERS Safety Report 4932587-4 (Version None)
Quarter: 2006Q1

REPORT INFORMATION
  Report Type: 
  Country: None (occurrence: None)
  Receive Date: 20060301
  Receipt Date: 20060216
  Transmission Date: 20060701
  Serious: Yes (Hospitalization, Other)
  Sender: FDA-Public Use
  Company Number: HQWYE839516FEB06

PATIENT
  Age: 21 Year
  Sex: Male

DRUGS (3)
  1. RAPAMUNE [Suspect]
     Indication: PROPHYLAXIS AGAINST TRANSPLANT REJECTION
     Dosage: 2 MG 1X PER 1 DAY ORAL
     Route: 048
     Dates: start: 20050721
  2. PREDNISONE TAB [Concomitant]
  3. CYCLOSPORINE [Concomitant]

REACTIONS (1)
  - KIDNEY TRANSPLANT REJECTION [None]
